FAERS Safety Report 8034540-3 (Version None)
Quarter: 2012Q1

REPORT INFORMATION
  Report Type: 
  Country: None (occurrence: None)
  Receive Date: 20120110
  Receipt Date: 20111227
  Transmission Date: 20120608
  Serious: Yes (Life-Threatening, Hospitalization, Disabling)
  Sender: FDA-Public Use
  Company Number: ES-CELGENEUS-144-21880-11092262

PATIENT
  Sex: Male

DRUGS (14)
  1. TRAMADOL HCL [Concomitant]
     Indication: PAIN
     Dosage: 150 MILLIGRAM
     Route: 048
     Dates: end: 20111029
  2. TRAMADOL HCL [Concomitant]
     Dosage: 300 MILLIGRAM
     Route: 048
     Dates: start: 20111121, end: 20111204
  3. REVLIMID [Suspect]
     Indication: MULTIPLE MYELOMA
     Dosage: 25 MILLIGRAM
     Route: 048
     Dates: start: 20110726, end: 20110813
  4. ZOLEDRONIC ACID [Concomitant]
     Route: 065
  5. MYSOLINE [Concomitant]
     Indication: CONVULSION
     Dosage: 125 MILLIGRAM
     Route: 048
     Dates: end: 20110812
  6. TRAMADOL HCL [Concomitant]
     Dosage: 100 MILLIGRAM
     Route: 041
     Dates: start: 20111206, end: 20111212
  7. ACYCLOVIR [Concomitant]
     Indication: INFECTION PROPHYLAXIS
     Dosage: 400 MILLIGRAM
     Route: 048
     Dates: end: 20110812
  8. CALCIUM CARBONATE [Concomitant]
     Indication: OSTEOPOROSIS PROPHYLAXIS
     Dosage: 500 MILLIGRAM
     Route: 048
  9. TRAMADOL HCL [Concomitant]
     Dosage: 300 MILLIGRAM
     Route: 041
     Dates: start: 20111030, end: 20111120
  10. LMWH [Concomitant]
     Indication: THROMBOSIS PROPHYLAXIS
     Route: 065
  11. INSULIN [Concomitant]
     Route: 058
  12. DEXAMETHASONE [Suspect]
     Indication: MULTIPLE MYELOMA
     Dosage: 40 MILLIGRAM
     Route: 048
     Dates: start: 20110726, end: 20110813
  13. DOXAZOSIN MESYLATE [Concomitant]
     Dosage: 4 MILLIGRAM
     Route: 048
  14. METHYLPREDNISOLONE ACETATE [Concomitant]
     Indication: MULTIPLE MYELOMA
     Dosage: 60 MILLIGRAM
     Route: 048
     Dates: end: 20110812

REACTIONS (5)
  - INTERVERTEBRAL DISCITIS [None]
  - INTERNAL FIXATION OF SPINE [None]
  - DRUG RASH WITH EOSINOPHILIA AND SYSTEMIC SYMPTOMS [None]
  - STAPHYLOCOCCAL BACTERAEMIA [None]
  - PSYCHOTIC DISORDER [None]
